FAERS Safety Report 4994803-2 (Version None)
Quarter: 2006Q2

REPORT INFORMATION
  Report Type: 
  Country: None (occurrence: None)
  Receive Date: 20060503
  Receipt Date: 20060424
  Transmission Date: 20061013
  Serious: No
  Sender: FDA-Public Use
  Company Number: 2005169912

PATIENT

DRUGS (4)
  1. VIRACEPT [Suspect]
     Indication: HIV TEST POSITIVE
     Dosage: 2500 MG, ORAL
     Route: 048
     Dates: start: 20051018
  2. COMBIVIR [Concomitant]
     Indication: HIV TEST POSITIVE
     Dosage: 2 DOSAGE FORM, ORAL
     Route: 048
     Dates: start: 20051018
  3. RETROVIR [Suspect]
     Indication: HIV TEST POSITIVE
     Dosage: SEE IMAGE
     Route: 042
     Dates: start: 20060323, end: 20060323
  4. RETROVIR [Suspect]
     Indication: HIV TEST POSITIVE
     Dosage: SEE IMAGE
     Route: 042
     Dates: start: 20060323, end: 20060323

REACTIONS (4)
  - ALPHA 1 FOETOPROTEIN ABNORMAL [None]
  - DRUG EXPOSURE DURING PREGNANCY [None]
  - PREGNANCY [None]
  - TRISOMY 18 [None]
